FAERS Safety Report 26215509 (Version 1)
Quarter: 2025Q4

REPORT INFORMATION
  Report Type: Spontaneous
  Country: US (occurrence: US)
  Receive Date: 20251231
  Receipt Date: 20251231
  Transmission Date: 20260118
  Serious: No
  Sender: ROCHE
  Company Number: US-ROCHE-10000471150

PATIENT
  Age: 15 Year
  Sex: Female
  Weight: 70 kg

DRUGS (4)
  1. XOFLUZA [Suspect]
     Active Substance: BALOXAVIR MARBOXIL
     Indication: Influenza
     Dosage: 1 DOSE ONLY
     Route: 048
     Dates: start: 20251226, end: 20251226
  2. SERTRALINE [Concomitant]
     Active Substance: SERTRALINE HYDROCHLORIDE
     Indication: Anxiety
     Route: 048
     Dates: start: 202511
  3. SERTRALINE [Concomitant]
     Active Substance: SERTRALINE HYDROCHLORIDE
     Route: 048
     Dates: start: 2025, end: 202511
  4. IRON [Concomitant]
     Active Substance: IRON
     Indication: Iron deficiency anaemia
     Route: 048
     Dates: start: 202509

REACTIONS (2)
  - Intentional product misuse [Unknown]
  - No adverse event [Unknown]

NARRATIVE: CASE EVENT DATE: 20251226
